FAERS Safety Report 25169953 (Version 2)
Quarter: 2025Q2

REPORT INFORMATION
  Report Type: Spontaneous
  Country: JP (occurrence: JP)
  Receive Date: 20250407
  Receipt Date: 20250613
  Transmission Date: 20250717
  Serious: No
  Sender: GLAXOSMITHKLINE
  Company Number: JP-GSKJP-JP2025JPN039189AA

PATIENT
  Age: 55 Year
  Sex: Male
  Weight: 86 kg

DRUGS (11)
  1. DAPRODUSTAT [Suspect]
     Active Substance: DAPRODUSTAT
     Indication: Nephrogenic anaemia
  2. DAPRODUSTAT [Suspect]
     Active Substance: DAPRODUSTAT
     Dosage: 2 MG, 1D
  3. DAPRODUSTAT [Suspect]
     Active Substance: DAPRODUSTAT
  4. FERROUS CITRATE [Concomitant]
     Active Substance: FERROUS CITRATE
     Dosage: 1 DF, 1D
  5. FERROUS CITRATE [Concomitant]
     Active Substance: FERROUS CITRATE
     Dosage: 2 DF, BID
  6. Cinal [Concomitant]
     Dosage: 1 G, 1D
  7. CALCIUM POLYSTYRENE SULFONATE [Concomitant]
     Active Substance: CALCIUM POLYSTYRENE SULFONATE
     Dosage: 3 DF, TID
  8. VOGLIBOSE [Concomitant]
     Active Substance: VOGLIBOSE
     Dosage: 0.2 MG, TID
  9. TRULICITY [Concomitant]
     Active Substance: DULAGLUTIDE
     Dosage: UNK, WE
  10. AMLODIPINE [Concomitant]
     Active Substance: AMLODIPINE BESYLATE
     Dosage: 5 MG, BID
  11. AZILSARTAN KAMEDOXOMIL [Concomitant]
     Active Substance: AZILSARTAN KAMEDOXOMIL
     Dosage: 20 MG, 1D

REACTIONS (3)
  - Hypertension [Unknown]
  - Product use issue [Unknown]
  - Off label use [Unknown]
